FAERS Safety Report 8772194 (Version 3)
Quarter: 2012Q4

REPORT INFORMATION
  Report Type: 
  Country: US (occurrence: US)
  Receive Date: 20120905
  Receipt Date: 20120920
  Transmission Date: 20130627
  Serious: Yes (Other)
  Sender: FDA-Public Use
  Company Number: US-PFIZER INC-2012214292

PATIENT
  Age: 64 Year
  Sex: Male
  Weight: 81.63 kg

DRUGS (4)
  1. CLINDAMYCIN HCL [Suspect]
     Indication: INFECTION PROPHYLAXIS
     Dosage: 300 mg, 3x/day
     Route: 048
     Dates: start: 20120112, end: 201202
  2. CLINDAMYCIN HCL [Suspect]
     Dosage: UNK
     Dates: end: 201203
  3. ATENOLOL [Concomitant]
     Indication: HYPERTENSION
     Dosage: UNK
  4. LOVASTATIN [Concomitant]
     Indication: BLOOD CHOLESTEROL INCREASED
     Dosage: UNK

REACTIONS (5)
  - Intestinal haemorrhage [Recovering/Resolving]
  - Clostridium difficile infection [Unknown]
  - Gastrointestinal disorder [Recovering/Resolving]
  - Diarrhoea [Recovering/Resolving]
  - Pruritus [Recovering/Resolving]
